FAERS Safety Report 5231296-4 (Version None)
Quarter: 2007Q1

REPORT INFORMATION
  Report Type: 
  Country: None (occurrence: None)
  Receive Date: 20070202
  Receipt Date: 20070122
  Transmission Date: 20070707
  Serious: Yes (Hospitalization)
  Sender: FDA-Public Use
  Company Number: GXBR2007US00520

PATIENT
  Age: 67 Year
  Sex: Female
  Weight: 90.7 kg

DRUGS (7)
  1. ATENOLOL [Suspect]
     Indication: HEART RATE IRREGULAR
     Dosage: 50 MG, QD, ORAL; SEE IMAGE
     Route: 048
     Dates: start: 20061117, end: 20061123
  2. ATENOLOL [Suspect]
     Indication: HEART RATE IRREGULAR
     Dosage: 50 MG, QD, ORAL; SEE IMAGE
     Route: 048
     Dates: start: 20061124, end: 20061213
  3. PLAVIX [Suspect]
     Indication: ANTIPLATELET THERAPY
     Dosage: 75 MG, QD, ORAL
     Route: 048
     Dates: start: 20050901, end: 20061207
  4. ASPIRIN [Concomitant]
  5. LIPITOR /NET/ (ATORVASTATIN CALCIUM) [Concomitant]
  6. L-THYROXINE (LEVOTHYROXINE) [Concomitant]
  7. ZETIA [Concomitant]

REACTIONS (10)
  - BLOOD PRESSURE DECREASED [None]
  - DEEP VEIN THROMBOSIS [None]
  - DYSPNOEA [None]
  - FEELING HOT [None]
  - HEART RATE DECREASED [None]
  - LETHARGY [None]
  - LOCAL SWELLING [None]
  - MUSCULOSKELETAL STIFFNESS [None]
  - PAIN [None]
  - PHLEBITIS [None]
